FAERS Safety Report 8504169 (Version 10)
Quarter: 2016Q1

REPORT INFORMATION
  Report Type: Report from Study
  Country: FR (occurrence: FR)
  Receive Date: 20120411
  Receipt Date: 20160223
  Transmission Date: 20160526
  Serious: Yes (Hospitalization)
  Sender: FDA-Public Use
  Company Number: FR-ROCHE-1039722

PATIENT
  Age: 47 Year
  Sex: Male
  Weight: 58.5 kg

DRUGS (18)
  1. FUNGIZONE [Concomitant]
     Active Substance: AMPHOTERICIN B
     Route: 065
     Dates: start: 20120106, end: 20120115
  2. SKENAN [Concomitant]
     Active Substance: MORPHINE SULFATE
     Dosage: PRN
     Route: 065
     Dates: start: 20120809
  3. PARACETAMOL [Concomitant]
     Active Substance: ACETAMINOPHEN
     Dosage: PRN
     Route: 065
     Dates: start: 20120112
  4. AVLOCARDYL [Concomitant]
     Active Substance: PROPRANOLOL HYDROCHLORIDE
     Route: 065
     Dates: start: 20110928
  5. FORLAX [Concomitant]
     Active Substance: POLYETHYLENE GLYCOL 4000
     Route: 065
     Dates: start: 20110809
  6. DIFFU K [Concomitant]
     Active Substance: POTASSIUM CHLORIDE
     Route: 065
     Dates: start: 20110207
  7. FENTANYL. [Concomitant]
     Active Substance: FENTANYL
     Dosage: DOSE: 150 MG/72 HRS
     Route: 065
     Dates: start: 20120112
  8. PEMETREXED [Suspect]
     Active Substance: PEMETREXED
     Indication: LUNG NEOPLASM MALIGNANT
     Dosage: LAST DOSE PRIOR TO SAE 26/JAN/2012?SECOND LINE TREATMENT
     Route: 042
     Dates: start: 20120105
  9. ONBREZ [Concomitant]
     Active Substance: INDACATEROL
     Dosage: BREEZHALER
     Route: 065
     Dates: start: 20120201
  10. BEVACIZUMAB [Suspect]
     Active Substance: BEVACIZUMAB
     Indication: LUNG NEOPLASM MALIGNANT
     Dosage: LAST DOSE PRIOR TO SAE 26/JAN/2012
     Route: 042
     Dates: start: 20120105, end: 20120126
  11. ZOPHREN [Concomitant]
     Active Substance: ONDANSETRON
     Dosage: PRN
     Route: 065
     Dates: start: 20120127
  12. ACTISKENAN [Concomitant]
     Active Substance: MORPHINE SULFATE
     Route: 065
     Dates: start: 20120809
  13. INEXIUM [Concomitant]
     Active Substance: ESOMEPRAZOLE
     Dosage: PRN
     Route: 065
     Dates: start: 20120112
  14. CELEBREX [Concomitant]
     Active Substance: CELECOXIB
     Route: 065
     Dates: start: 20111122
  15. VOGALENE [Concomitant]
     Active Substance: METOPIMAZINE
     Route: 065
     Dates: start: 20111122
  16. TAVANIC [Concomitant]
     Active Substance: LEVOFLOXACIN
     Route: 065
     Dates: start: 20120115, end: 20120207
  17. ACID FOLIC [Concomitant]
     Route: 065
     Dates: start: 20111226
  18. VITAMIN B12 [Concomitant]
     Active Substance: CYANOCOBALAMIN
     Route: 065
     Dates: start: 20111227

REACTIONS (1)
  - Renal tubular disorder [Recovered/Resolved]

NARRATIVE: CASE EVENT DATE: 20120204
